FAERS Safety Report 12527840 (Version 2)
Quarter: 2016Q3

REPORT INFORMATION
  Report Type: Spontaneous
  Country: US (occurrence: US)
  Receive Date: 20160705
  Receipt Date: 20160805
  Transmission Date: 20161109
  Serious: Yes (Other)
  Sender: FDA-Public Use
  Company Number: US-BAYER-2016-130812

PATIENT
  Age: 26 Year
  Sex: Female
  Weight: 101 kg

DRUGS (1)
  1. MIRENA [Suspect]
     Active Substance: LEVONORGESTREL
     Indication: CONTRACEPTION
     Dosage: 20 MCG/24HR, CONT
     Route: 015
     Dates: start: 20121016, end: 20160701

REACTIONS (6)
  - Device breakage [Not Recovered/Not Resolved]
  - Pain [None]
  - Embedded device [Not Recovered/Not Resolved]
  - Genital haemorrhage [None]
  - Complication of device removal [None]
  - Device difficult to use [None]

NARRATIVE: CASE EVENT DATE: 20160624
